FAERS Safety Report 9312232 (Version 1)
Quarter: 2013Q2

REPORT INFORMATION
  Report Type: Spontaneous
  Country: US (occurrence: US)
  Receive Date: 20130528
  Receipt Date: 20130528
  Transmission Date: 20140414
  Serious: No
  Sender: FDA-Public Use
  Company Number: US-MYLANLABS-2013S1008410

PATIENT
  Age: 62 Year
  Sex: Female
  Weight: 49.9 kg

DRUGS (6)
  1. MONTELUKAST SODIUM [Suspect]
     Indication: SYSTEMIC MASTOCYTOSIS
     Route: 048
  2. MONTELUKAST SODIUM [Suspect]
     Indication: OFF LABEL USE
     Route: 048
  3. CLONAZEPAM [Concomitant]
  4. MULTIVITAMIN [Concomitant]
     Dosage: NATUREMADE FOR HER
  5. VITAMIN C [Concomitant]
     Dosage: NOW BRAND
  6. METHYL B12 [Concomitant]
     Dosage: NOW BRAND

REACTIONS (11)
  - Drug ineffective for unapproved indication [Recovered/Resolved]
  - Systemic mastocytosis [Recovered/Resolved]
  - Myalgia [Recovered/Resolved]
  - Arthralgia [Recovered/Resolved]
  - Bone pain [Recovered/Resolved]
  - Abdominal discomfort [Recovered/Resolved]
  - Constipation [Recovered/Resolved]
  - Flatulence [Recovered/Resolved]
  - Abdominal distension [Recovered/Resolved]
  - Fatigue [Recovered/Resolved]
  - Reaction to drug excipients [Recovered/Resolved]
